FAERS Safety Report 24007308 (Version 1)
Quarter: 2024Q2

REPORT INFORMATION
  Report Type: Spontaneous
  Country: FR (occurrence: FR)
  Receive Date: 20240624
  Receipt Date: 20240624
  Transmission Date: 20240716
  Serious: Yes (Other)
  Sender: FDA-Public Use
  Company Number: FR-ENDO USA, INC.-2024-002739

PATIENT
  Age: 77 Year
  Sex: Male
  Weight: 70 kg

DRUGS (5)
  1. EDEX [Suspect]
     Active Substance: ALPROSTADIL
     Indication: Erectile dysfunction
     Dosage: 1 DOSAGE FORM, WEEKLY (10 MICROGRAMS/1 ML)
     Route: 017
     Dates: start: 20181216, end: 20240116
  2. EDEX [Suspect]
     Active Substance: ALPROSTADIL
     Indication: Erectile dysfunction
     Dosage: 1 DOSAGE FORM, WEEKLY (10 MICROGRAMS/1 ML)
     Route: 017
     Dates: start: 20181216, end: 20240116
  3. EDEX [Suspect]
     Active Substance: ALPROSTADIL
     Indication: Erectile dysfunction
     Dosage: 1 DOSAGE FORM, WEEKLY (10 MICROGRAMS/1 ML)
     Route: 017
     Dates: start: 20181216, end: 20240116
  4. EDEX [Suspect]
     Active Substance: ALPROSTADIL
     Indication: Erectile dysfunction
     Dosage: 1 DOSAGE FORM, WEEKLY (10 MICROGRAMS/1 ML)
     Route: 017
     Dates: start: 20181216, end: 20240116
  5. EDEX [Suspect]
     Active Substance: ALPROSTADIL
     Indication: Erectile dysfunction
     Dosage: 1 DOSAGE FORM, WEEKLY (10 MICROGRAMS/1 ML)
     Route: 017
     Dates: start: 20181216, end: 20240116

REACTIONS (1)
  - Chest pain [Recovered/Resolved]

NARRATIVE: CASE EVENT DATE: 20230404
